FAERS Safety Report 4673075-2 (Version None)
Quarter: 2005Q2

REPORT INFORMATION
  Report Type: 
  Country: None (occurrence: None)
  Receive Date: 20050523
  Receipt Date: 20050513
  Transmission Date: 20051028
  Serious: Yes (Life-Threatening, Hospitalization, Disabling)
  Sender: FDA-Public Use
  Company Number: 2005-05-1026

PATIENT
  Age: 49 Year
  Sex: Female
  Weight: 84 kg

DRUGS (2)
  1. TRILAFON [Suspect]
  2. ZYPREXA [Concomitant]

REACTIONS (10)
  - ABDOMINAL DISTENSION [None]
  - CONSTIPATION [None]
  - DIARRHOEA [None]
  - DIZZINESS [None]
  - DRUG TOXICITY [None]
  - FEELING DRUNK [None]
  - MALAISE [None]
  - PSYCHOTIC DISORDER [None]
  - RETCHING [None]
  - SOMNOLENCE [None]
